FAERS Safety Report 12601914 (Version 1)
Quarter: 2016Q3

REPORT INFORMATION
  Report Type: Spontaneous
  Country: US (occurrence: US)
  Receive Date: 20160728
  Receipt Date: 20160728
  Transmission Date: 20161109
  Serious: No
  Sender: FDA-Public Use
  Company Number: US-BAUSCH-BL-2016-003634

PATIENT
  Sex: Female

DRUGS (2)
  1. ANUSOL HC SUPPOSITORY [Suspect]
     Active Substance: HYDROCORTISONE ACETATE
     Indication: ANALGESIC THERAPY
     Route: 065
  2. ANUSOL HC [Suspect]
     Active Substance: HYDROCORTISONE
     Indication: ANALGESIC THERAPY
     Route: 065

REACTIONS (2)
  - Drug ineffective [Unknown]
  - Pain [Unknown]
